FAERS Safety Report 18984708 (Version 1)
Quarter: 2021Q1

REPORT INFORMATION
  Report Type: Other
  Country: BR (occurrence: BR)
  Receive Date: 20210309
  Receipt Date: 20210309
  Transmission Date: 20210420
  Serious: Yes (Death, Other)
  Sender: FDA-Public Use
  Company Number: BR-ROCHE-2785316

PATIENT
  Sex: Female
  Weight: 1.02 kg

DRUGS (4)
  1. AZITHROMYCIN ANHYDROUS. [Suspect]
     Active Substance: AZITHROMYCIN ANHYDROUS
     Indication: PRODUCT USED FOR UNKNOWN INDICATION
     Route: 064
  2. ENOXAPARIN [Suspect]
     Active Substance: ENOXAPARIN
     Indication: PRODUCT USED FOR UNKNOWN INDICATION
     Route: 064
  3. OSELTAMIVIR [Suspect]
     Active Substance: OSELTAMIVIR
     Indication: PRODUCT USED FOR UNKNOWN INDICATION
     Route: 064
  4. MISOPROSTOL. [Suspect]
     Active Substance: MISOPROSTOL
     Indication: PRODUCT USED FOR UNKNOWN INDICATION
     Route: 064

REACTIONS (13)
  - Skin discolouration [Unknown]
  - Petechiae [Unknown]
  - Liver disorder [Unknown]
  - Pulmonary hypoplasia [Unknown]
  - Neonatal asphyxia [Unknown]
  - COVID-19 [Fatal]
  - Lymphocytic infiltration [Unknown]
  - Skin exfoliation [Unknown]
  - Nervous system disorder [Unknown]
  - Renal hypoplasia [Unknown]
  - Muscle oedema [Unknown]
  - Foetal exposure during pregnancy [Unknown]
  - Effusion [Unknown]
